FAERS Safety Report 4993503-2 (Version None)
Quarter: 2006Q2

REPORT INFORMATION
  Report Type: 
  Country: None (occurrence: None)
  Receive Date: 20060504
  Receipt Date: 20060504
  Transmission Date: 20061013
  Serious: Yes (Life-Threatening, Hospitalization)
  Sender: FDA-Public Use
  Company Number: None

PATIENT
  Age: 54 Year
  Sex: Male
  Weight: 127.0072 kg

DRUGS (4)
  1. ACTIQ      800MG [Suspect]
     Indication: PAIN
     Dosage: 800 MCG   TWICE DAILY   PO
     Route: 048
     Dates: start: 20041117, end: 20050224
  2. ACTIQ     400 MCG [Suspect]
     Dosage: 400 MCG    TWICE DAILY   PO
     Route: 048
  3. FENTANYL [Concomitant]
  4. DURAGESIC-100 [Concomitant]

REACTIONS (4)
  - BLOOD GLUCOSE INCREASED [None]
  - OVERDOSE [None]
  - PERFORMANCE STATUS DECREASED [None]
  - UNEVALUABLE EVENT [None]
